FAERS Safety Report 16463532 (Version 2)
Quarter: 2019Q3

REPORT INFORMATION
  Report Type: Report from Study
  Country: JP (occurrence: JP)
  Receive Date: 20190621
  Receipt Date: 20190809
  Transmission Date: 20191004
  Serious: Yes (Hospitalization, Other)
  Sender: FDA-Public Use
  Company Number: JP-SUNOVION-2018SUN005128

PATIENT
  Age: 69 Year
  Sex: Female

DRUGS (38)
  1. NERBLOC [Suspect]
     Active Substance: RIMABOTULINUMTOXINB
     Dosage: 2500 IU
     Route: 030
     Dates: start: 20171027, end: 20171027
  2. NERBLOC [Suspect]
     Active Substance: RIMABOTULINUMTOXINB
     Dosage: 2500.2 IU
     Route: 030
     Dates: start: 20190212, end: 20190212
  3. PRIMIDONE. [Concomitant]
     Active Substance: PRIMIDONE
     Indication: TORTICOLLIS
     Dosage: 100 MG
     Route: 048
     Dates: end: 20160826
  4. NERBLOC [Suspect]
     Active Substance: RIMABOTULINUMTOXINB
     Dosage: 5000 IU
     Route: 030
     Dates: start: 20160617, end: 20160617
  5. NERBLOC [Suspect]
     Active Substance: RIMABOTULINUMTOXINB
     Dosage: 5000 IU
     Route: 030
     Dates: start: 20170113, end: 20170113
  6. PRIMIDONE. [Concomitant]
     Active Substance: PRIMIDONE
     Dosage: 250 MG
     Route: 048
     Dates: start: 20170113, end: 20180316
  7. RISUMIC [Concomitant]
     Active Substance: AMEZINIUM METILSULFATE
     Dosage: 20 MG
     Route: 048
     Dates: end: 20180316
  8. SEROQUEL [Concomitant]
     Active Substance: QUETIAPINE FUMARATE
     Dosage: 25 MG
     Route: 048
     Dates: start: 20190219
  9. METHYCOBAL [Concomitant]
     Active Substance: METHYLCOBALAMIN
     Indication: PROPHYLAXIS
     Dosage: 1500 ?G
     Route: 048
     Dates: start: 20190301
  10. PRIMIDONE. [Concomitant]
     Active Substance: PRIMIDONE
     Dosage: 200 MG
     Route: 048
     Dates: start: 20161104, end: 20170113
  11. MYSLEE [Concomitant]
     Active Substance: ZOLPIDEM TARTRATE
     Route: 048
     Dates: end: 20160617
  12. LOXONIN [Concomitant]
     Active Substance: LOXOPROFEN SODIUM
     Indication: TORTICOLLIS
     Dosage: 60 MG/DOSE, AT AN OPTIMUM DOSE/ON AN AS-NEEDED BASIS
     Route: 048
     Dates: end: 20170705
  13. PURSENNID [Concomitant]
     Dosage: 24MG/DAY, AT AN OPTIMUM DOSE/ON AN AS-NEEDED BASIS
     Route: 048
     Dates: start: 20180328
  14. NERBLOC [Suspect]
     Active Substance: RIMABOTULINUMTOXINB
     Indication: TORTICOLLIS
     Dosage: 5000 IU
     Route: 030
     Dates: start: 20160325, end: 20160325
  15. NERBLOC [Suspect]
     Active Substance: RIMABOTULINUMTOXINB
     Dosage: 5000 IU
     Route: 030
     Dates: start: 20170324, end: 20170324
  16. NERBLOC [Suspect]
     Active Substance: RIMABOTULINUMTOXINB
     Dosage: 2500.2 IU
     Route: 030
     Dates: start: 20180316, end: 20180316
  17. NERBLOC [Suspect]
     Active Substance: RIMABOTULINUMTOXINB
     Dosage: 2500.2 IU
     Route: 030
     Dates: start: 20181012, end: 20181012
  18. BELSOMRA [Suspect]
     Active Substance: SUVOREXANT
     Route: 048
  19. CELECOX [Concomitant]
     Active Substance: CELECOXIB
     Indication: TORTICOLLIS
     Dosage: 200 MG
     Route: 048
     Dates: end: 20180316
  20. PRIMIDONE. [Concomitant]
     Active Substance: PRIMIDONE
     Dosage: 300 MG
     Route: 048
     Dates: start: 20180316, end: 20181207
  21. DOGMATYL [Concomitant]
     Active Substance: SULPIRIDE
     Indication: PROPHYLAXIS
     Dosage: 50 MG
     Route: 048
  22. FEBURIC [Concomitant]
     Active Substance: FEBUXOSTAT
     Indication: PROPHYLAXIS
     Dosage: 10 MG
     Route: 048
     Dates: start: 20180328
  23. LUNESTA [Suspect]
     Active Substance: ESZOPICLONE
     Dosage: 1 MG, QD
     Route: 048
     Dates: end: 20160617
  24. PRIMIDONE. [Concomitant]
     Active Substance: PRIMIDONE
     Dosage: 150 MG
     Route: 048
     Dates: start: 20160826, end: 20161104
  25. LUNESTA [Suspect]
     Active Substance: ESZOPICLONE
     Dosage: 2MG/DAY, AT AN OPTIMUM DOSE/ON AN AS-NEEDED BASIS
     Route: 048
     Dates: start: 20180328
  26. NERBLOC [Suspect]
     Active Substance: RIMABOTULINUMTOXINB
     Dosage: 5000 IU
     Route: 030
     Dates: start: 20161104, end: 20161104
  27. NERBLOC [Suspect]
     Active Substance: RIMABOTULINUMTOXINB
     Dosage: 2500.2 IU
     Route: 030
     Dates: start: 20180525, end: 20180525
  28. NERBLOC [Suspect]
     Active Substance: RIMABOTULINUMTOXINB
     Dosage: 2500.2 IU
     Route: 030
     Dates: start: 20181207, end: 20181207
  29. RIVOTRIL [Suspect]
     Active Substance: CLONAZEPAM
     Indication: TORTICOLLIS
     Route: 048
     Dates: end: 20190215
  30. RIVOTRIL [Suspect]
     Active Substance: CLONAZEPAM
     Route: 048
     Dates: start: 20190215
  31. AROTINOLOL HYDROCHLORIDE [Concomitant]
     Active Substance: AROTINOLOL HYDROCHLORIDE
     Indication: TORTICOLLIS
     Route: 048
     Dates: end: 20190130
  32. PRIMIDONE. [Concomitant]
     Active Substance: PRIMIDONE
     Dosage: 350 MG
     Route: 048
     Dates: start: 20181207
  33. NERBLOC [Suspect]
     Active Substance: RIMABOTULINUMTOXINB
     Dosage: 5000 IU
     Route: 030
     Dates: start: 20160826, end: 20160826
  34. NERBLOC [Suspect]
     Active Substance: RIMABOTULINUMTOXINB
     Dosage: 5000 IU
     Route: 030
     Dates: start: 20170602, end: 20170602
  35. NERBLOC [Suspect]
     Active Substance: RIMABOTULINUMTOXINB
     Dosage: 2500.2 IU
     Route: 030
     Dates: start: 20180105, end: 20180105
  36. NERBLOC [Suspect]
     Active Substance: RIMABOTULINUMTOXINB
     Dosage: 2500.2 IU
     Route: 030
     Dates: start: 20180803, end: 20180803
  37. TAKEPRON [Concomitant]
     Active Substance: LANSOPRAZOLE
     Indication: PROPHYLAXIS
     Dosage: 15 MG
     Route: 048
  38. EXCEGRAN [Concomitant]
     Active Substance: ZONISAMIDE
     Dosage: 500 MG
     Route: 048
     Dates: start: 20180316, end: 20190215

REACTIONS (7)
  - Femoral neck fracture [Recovered/Resolved]
  - Fall [Recovered/Resolved]
  - Anaemia [Recovered/Resolved]
  - Pulmonary arterial hypertension [Recovering/Resolving]
  - Femoral neck fracture [Recovered/Resolved]
  - Muscle atrophy [Not Recovered/Not Resolved]
  - Overdose [Unknown]

NARRATIVE: CASE EVENT DATE: 20170628
